FAERS Safety Report 6764491-3 (Version None)
Quarter: 2010Q2

REPORT INFORMATION
  Report Type: 
  Country: None (occurrence: None)
  Receive Date: 20100609
  Receipt Date: 20100415
  Transmission Date: 20101027
  Serious: No
  Sender: FDA-Public Use
  Company Number: 2010009607

PATIENT
  Age: 7 Year
  Sex: Male
  Weight: 36.2878 kg

DRUGS (1)
  1. CHILDREN'S ZYRTEC ALLERGY [Suspect]
     Indication: HYPERSENSITIVITY
     Dosage: UNSPECIFIED, ORAL
     Route: 048
     Dates: start: 20060401

REACTIONS (1)
  - EPISTAXIS [None]
